FAERS Safety Report 5863351-X (Version None)
Quarter: 2008Q3

REPORT INFORMATION
  Report Type: 
  Country: None (occurrence: None)
  Receive Date: 20080828
  Receipt Date: 20080822
  Transmission Date: 20090109
  Serious: Yes (Other)
  Sender: FDA-Public Use
  Company Number: US-JNJFOC-20080503976

PATIENT
  Age: 18 Year
  Sex: Male
  Weight: 63.5 kg

DRUGS (3)
  1. TYLENOL COLD MULTI-SYMPTOM NIGHTTIME COOL BURST [Suspect]
     Indication: RHINORRHOEA
     Route: 048
  2. TYLENOL COLD MULTI-SYMPTOM NIGHTTIME COOL BURST [Suspect]
     Indication: OROPHARYNGEAL PAIN
     Route: 048
  3. TYLENOL COLD MULTI-SYMPTOM NIGHTTIME COOL BURST [Suspect]
     Indication: NASOPHARYNGITIS
     Route: 048

REACTIONS (6)
  - AMNESIA [None]
  - COLD SWEAT [None]
  - FEELING ABNORMAL [None]
  - FEELING HOT [None]
  - LETHARGY [None]
  - MEDICATION TAMPERING [None]
